FAERS Safety Report 21213085 (Version 1)
Quarter: 2022Q3

REPORT INFORMATION
  Report Type: Spontaneous
  Country: DK (occurrence: DK)
  Receive Date: 20220815
  Receipt Date: 20220815
  Transmission Date: 20221027
  Serious: Yes (Life-Threatening)
  Sender: FDA-Public Use
  Company Number: None

PATIENT
  Age: 64 Year
  Sex: Female
  Weight: 74 kg

DRUGS (8)
  1. SAMSCA [Suspect]
     Active Substance: TOLVAPTAN
     Indication: Renal salt-wasting syndrome
     Dosage: STRENGTH: 7.5 MG
     Route: 048
     Dates: start: 20200510
  2. METRONIDAZOLE [Suspect]
     Active Substance: METRONIDAZOLE
     Indication: Tooth infection
     Dosage: STRENGTH: 500 MG.
     Route: 048
     Dates: start: 20220707, end: 20220713
  3. LERCANIDIPINE HYDROCHLORIDE [Concomitant]
     Active Substance: LERCANIDIPINE HYDROCHLORIDE
     Indication: Renal hypertension
     Dosage: STRENGTH: UNKNOWN
     Route: 065
     Dates: start: 20120410
  4. AMILORIDE [Concomitant]
     Active Substance: AMILORIDE
     Indication: Hypokalaemia
     Dosage: STRENGTH: UNKNOWN
     Route: 065
     Dates: start: 20040305
  5. AMOXICILLIN [Concomitant]
     Active Substance: AMOXICILLIN
     Indication: Endocarditis prophylaxis
     Dosage: DOSAGE: AS NECESSARY BEFORE DENTAL APPOINTMENTS, TREATMENT FOR 14 DAYS STARTING 07JUL2022
     Route: 065
     Dates: start: 20030303
  6. MICARDIS [Concomitant]
     Active Substance: TELMISARTAN
     Indication: Renal hypertension
     Dosage: STRENGTH: UNKNOWN
     Route: 065
     Dates: start: 20021010
  7. VIVELLE-DOT [Concomitant]
     Active Substance: ESTRADIOL
     Indication: Postmenopause
     Dosage: STRENGTH: UNKNOWN
     Route: 065
     Dates: start: 20000505
  8. WARFARIN SODIUM [Concomitant]
     Active Substance: WARFARIN SODIUM
     Indication: Anticoagulant therapy
     Dosage: 2.5 MG FOLLOWING SCHEDULE STRENGTH: UNKNOWN
     Route: 065
     Dates: start: 20030303

REACTIONS (4)
  - Amylase increased [Not Recovered/Not Resolved]
  - Hyponatraemia [Recovering/Resolving]
  - Therapeutic product effect decreased [Recovering/Resolving]
  - Product use in unapproved indication [Unknown]

NARRATIVE: CASE EVENT DATE: 20220707
